FAERS Safety Report 7327636 (Version 2)
Quarter: 2014Q2

REPORT INFORMATION
  Report Type: Spontaneous
  Country: GR (occurrence: None)
  Receive Date: 20100304
  Receipt Date: 20140415
  Transmission Date: 20141212
  Serious: Yes (Hospitalization, Other)
  Sender: FDA-Public Use
  Company Number: AUR-APL-2010-00531

PATIENT
  Age: 66 Year
  Sex: Female

DRUGS (2)
  1. CIPROFLOXACIN [Suspect]
     Indication: PYELONEPHRITIS ACUTE
     Dosage: 1000MG - DAILY
  2. LEVOTHYROXINE [Suspect]
     Indication: THYROID HORMONE REPLACEMENT THERAPY
     Dosage: 150UG - DAILY

REACTIONS (7)
  - Stevens-Johnson syndrome [None]
  - Overdose [None]
  - Fatigue [None]
  - Pyelonephritis acute [None]
  - Sinus tachycardia [None]
  - Hyperthyroidism [None]
  - Drug interaction [None]
